FAERS Safety Report 6880453-X (Version None)
Quarter: 2010Q3

REPORT INFORMATION
  Report Type: 
  Country: None (occurrence: None)
  Receive Date: 20100727
  Receipt Date: 20100708
  Transmission Date: 20110219
  Serious: Yes (Hospitalization)
  Sender: FDA-Public Use
  Company Number: A0866637A

PATIENT
  Age: 61 Year
  Sex: Male

DRUGS (1)
  1. AVANDIA [Suspect]
     Dosage: 4MG PER DAY
     Dates: start: 20030101, end: 20071212

REACTIONS (7)
  - ANAEMIA [None]
  - CARDIAC FAILURE CONGESTIVE [None]
  - CELLULITIS [None]
  - CEREBROVASCULAR ACCIDENT [None]
  - DIABETIC ULCER [None]
  - OSTEOMYELITIS [None]
  - PERIPHERAL VASCULAR DISORDER [None]
